FAERS Safety Report 4713301-4 (Version None)
Quarter: 2005Q3

REPORT INFORMATION
  Report Type: 
  Country: None (occurrence: None)
  Receive Date: 20050713
  Receipt Date: 20050503
  Transmission Date: 20060218
  Serious: Yes (Life-Threatening, Hospitalization, Disabling, Other)
  Sender: FDA-Public Use
  Company Number: US-GLAXOSMITHKLINE-A0557090A

PATIENT
  Sex: Female

DRUGS (2)
  1. PAXIL [Suspect]
     Route: 048
  2. NO CONCURRENT MEDICATION [Concomitant]

REACTIONS (3)
  - BLOOD SODIUM DECREASED [None]
  - FLUID RETENTION [None]
  - SOMNOLENCE [None]
